FAERS Safety Report 6291366-9 (Version None)
Quarter: 2009Q3

REPORT INFORMATION
  Report Type: 
  Country: None (occurrence: None)
  Receive Date: 20090730
  Receipt Date: 20090716
  Transmission Date: 20100115
  Serious: Yes (Hospitalization, Other)
  Sender: FDA-Public Use
  Company Number: CA-GENENTECH-268690

PATIENT
  Sex: Male

DRUGS (6)
  1. XOLAIR [Suspect]
     Indication: ASTHMA
     Dosage: 375 MG, 2/WEEK
     Route: 058
     Dates: start: 20080725
  2. CHOLESTEROL LOWERING AGENTS [Concomitant]
     Indication: BLOOD CHOLESTEROL INCREASED
  3. HYPERTENSIVE MEDICATION (UNK INGREDIENTS) [Concomitant]
     Indication: HYPERTENSION
  4. PSYCHOPHARMACEUTICALS NOS [Concomitant]
     Indication: DRUG USE FOR UNKNOWN INDICATION
  5. AVELOX [Concomitant]
     Indication: DRUG USE FOR UNKNOWN INDICATION
     Dosage: 400 MG, QD
     Route: 048
  6. PREDNISONE [Concomitant]
     Indication: DRUG USE FOR UNKNOWN INDICATION
     Dosage: UNK

REACTIONS (6)
  - CARDIAC ARREST [None]
  - LOSS OF CONSCIOUSNESS [None]
  - NASOPHARYNGITIS [None]
  - PYREXIA [None]
  - SINUS CONGESTION [None]
  - WALKING DISABILITY [None]
